FAERS Safety Report 9469321 (Version 2)
Quarter: 2013Q3

REPORT INFORMATION
  Report Type: Spontaneous
  Country: US (occurrence: None)
  Receive Date: 20130815
  Receipt Date: 20130823
  Transmission Date: 20140515
  Serious: Yes (Hospitalization)
  Sender: FDA-Public Use
  Company Number: ADR-2013-01373

PATIENT
  Age: 30 Year
  Sex: Female

DRUGS (1)
  1. BACLOFEN [Suspect]
     Indication: MUSCLE SPASTICITY

REACTIONS (4)
  - Pruritus [None]
  - Restlessness [None]
  - Insomnia [None]
  - Hypertonia [None]
